FAERS Safety Report 14723251 (Version 1)
Quarter: 2018Q2

REPORT INFORMATION
  Report Type: Spontaneous
  Country: US (occurrence: US)
  Receive Date: 20180405
  Receipt Date: 20180405
  Transmission Date: 20180711
  Serious: Yes (Hospitalization)
  Sender: FDA-Public Use
  Company Number: US-TEVA-2018-US-877388

PATIENT
  Age: 61 Year
  Sex: Male

DRUGS (1)
  1. PREDNISONE. [Suspect]
     Active Substance: PREDNISONE
     Indication: CHRONIC OBSTRUCTIVE PULMONARY DISEASE
     Dosage: HIGH-DOSE; FOR THE LAST TWO YEARS
     Route: 065

REACTIONS (6)
  - Peritonitis [Recovered/Resolved]
  - Escherichia infection [Recovered/Resolved]
  - Pyomyositis [Recovered/Resolved]
  - Diverticulitis [Recovered/Resolved]
  - Enterococcal infection [Recovered/Resolved]
  - Abscess [Recovered/Resolved]
